FAERS Safety Report 9916222 (Version 3)
Quarter: 2014Q1

REPORT INFORMATION
  Report Type: Spontaneous
  Country: BR (occurrence: BR)
  Receive Date: 20140221
  Receipt Date: 20140307
  Transmission Date: 20141002
  Serious: Yes (Other)
  Sender: FDA-Public Use
  Company Number: BR-JNJFOC-20140209750

PATIENT
  Sex: Male
  Weight: 88 kg

DRUGS (9)
  1. REMICADE [Suspect]
     Indication: PSORIATIC ARTHROPATHY
     Route: 042
     Dates: start: 20140226
  2. REMICADE [Suspect]
     Indication: PSORIATIC ARTHROPATHY
     Route: 042
     Dates: start: 20131014
  3. REMICADE [Suspect]
     Indication: PSORIATIC ARTHROPATHY
     Route: 042
     Dates: start: 20130301
  4. REMICADE [Suspect]
     Indication: PSORIATIC ARTHROPATHY
     Route: 042
     Dates: start: 201312
  5. REMICADE [Suspect]
     Indication: PSORIATIC ARTHROPATHY
     Route: 042
     Dates: start: 201306
  6. METHOTREXATE [Concomitant]
     Route: 065
  7. CIPROFIBRATE [Concomitant]
     Indication: BLOOD CHOLESTEROL
     Route: 065
  8. ALLOPURINOL [Concomitant]
     Indication: RENAL DISORDER
     Route: 065
  9. TRAMADOL [Concomitant]
     Indication: ANALGESIC THERAPY
     Route: 065

REACTIONS (1)
  - Nerve compression [Not Recovered/Not Resolved]
